FAERS Safety Report 18502950 (Version 2)
Quarter: 2021Q1

REPORT INFORMATION
  Report Type: Spontaneous
  Country: US (occurrence: US)
  Receive Date: 20201113
  Receipt Date: 20210223
  Transmission Date: 20210419
  Serious: Yes (Death)
  Sender: FDA-Public Use
  Company Number: US-THERATECHNOLOGIES EUROPE LIMITED-2020-THE-IBA-000263

PATIENT
  Sex: Male

DRUGS (19)
  1. HYDRALAZINE HCL [Concomitant]
     Active Substance: HYDRALAZINE HYDROCHLORIDE
     Dosage: 50 MG, QID
     Route: 048
  2. LIOTHYRONINE [Concomitant]
     Active Substance: LIOTHYRONINE
     Dosage: 25 MG, QD
     Route: 048
  3. XIFAXAN [Concomitant]
     Active Substance: RIFAXIMIN
     Dosage: 550 MG, BID
     Route: 048
  4. NADOLOL. [Concomitant]
     Active Substance: NADOLOL
     Dosage: 40 MG, QD
     Route: 048
  5. SELZENTRY [Concomitant]
     Active Substance: MARAVIROC
     Dosage: 300 MG, BID
     Route: 048
  6. TERAZOSIN HCL [Concomitant]
     Active Substance: TERAZOSIN HYDROCHLORIDE
     Dosage: 1 MG, QSH
     Route: 048
  7. TROGARZO [Suspect]
     Active Substance: IBALIZUMAB-UIYK
     Indication: HIV INFECTION
     Dosage: 800 MG, Q2WEEKS
     Route: 042
     Dates: start: 2019, end: 20200730
  8. CRESTOR [Concomitant]
     Active Substance: ROSUVASTATIN CALCIUM
     Dosage: 10 MG, QD
     Route: 048
  9. GLIMEPIRIDE. [Concomitant]
     Active Substance: GLIMEPIRIDE
     Dosage: 4 MG, QD
     Route: 048
  10. MIRTAZAPINE. [Concomitant]
     Active Substance: MIRTAZAPINE
     Dosage: 45 MG, QSH
     Route: 048
  11. FUROSEMIDE. [Concomitant]
     Active Substance: FUROSEMIDE
     Dosage: 20 MG, QD
     Route: 048
  12. BUPROPION HCL [Concomitant]
     Active Substance: BUPROPION HYDROCHLORIDE
     Dosage: 100 MG, BID
     Route: 048
  13. FINASTERIDE. [Concomitant]
     Active Substance: FINASTERIDE
     Dosage: 5 MG, QD
     Route: 048
  14. TESTOSTERONE. [Concomitant]
     Active Substance: TESTOSTERONE
     Dosage: 200 MG, Q4 WEEKS
  15. LORAZEPAM. [Concomitant]
     Active Substance: LORAZEPAM
     Dosage: 1 MG, TID
     Route: 048
  16. ISENTRESS [Concomitant]
     Active Substance: RALTEGRAVIR POTASSIUM
     Dosage: 400 MG, BID
     Route: 048
  17. PREVIDENT [Concomitant]
     Active Substance: SODIUM FLUORIDE
     Dosage: UNK
     Route: 061
  18. FERROUS SULFATE. [Concomitant]
     Active Substance: FERROUS SULFATE
     Dosage: 325 MG, TID
     Route: 048
  19. IMIQUIMOD. [Concomitant]
     Active Substance: IMIQUIMOD
     Dosage: UNK
     Route: 061

REACTIONS (1)
  - Chronic disease [Fatal]
